FAERS Safety Report 18849209 (Version 1)
Quarter: 2021Q1

REPORT INFORMATION
  Report Type: Spontaneous
  Country: DE (occurrence: DE)
  Receive Date: 20210204
  Receipt Date: 20210204
  Transmission Date: 20210419
  Serious: Yes (Death, Other)
  Sender: FDA-Public Use
  Company Number: DE-009507513-2102DEU001530

PATIENT
  Age: 63 Year
  Sex: Female

DRUGS (2)
  1. PEMBROLIZUMAB. [Suspect]
     Active Substance: PEMBROLIZUMAB
     Indication: ANAPLASTIC THYROID CANCER
     Dosage: 200 MILLIGRAM, Q3W
     Route: 042
  2. LENVATINIB MESYLATE [Suspect]
     Active Substance: LENVATINIB MESYLATE
     Indication: ANAPLASTIC THYROID CANCER
     Dosage: 20 MILLIGRAM, QD
     Route: 048

REACTIONS (4)
  - Cervix haemorrhage uterine [Fatal]
  - Diarrhoea [Unknown]
  - Hypertension [Unknown]
  - Off label use [Unknown]
